FAERS Safety Report 23623382 (Version 2)
Quarter: 2024Q2

REPORT INFORMATION
  Report Type: Spontaneous
  Country: US (occurrence: US)
  Receive Date: 20240312
  Receipt Date: 20240411
  Transmission Date: 20240716
  Serious: No
  Sender: FDA-Public Use
  Company Number: US-BIOGEN-2024BI01254428

PATIENT
  Age: 47 Year
  Sex: Female
  Weight: 79.45 kg

DRUGS (1)
  1. TYSABRI [Suspect]
     Active Substance: NATALIZUMAB
     Indication: Multiple sclerosis
     Route: 050

REACTIONS (3)
  - Vision blurred [Unknown]
  - Pollakiuria [Unknown]
  - Headache [Unknown]
